FAERS Safety Report 10208386 (Version 2)
Quarter: 2014Q2

REPORT INFORMATION
  Report Type: Spontaneous
  Country: US (occurrence: US)
  Receive Date: 20140530
  Receipt Date: 20140530
  Transmission Date: 20141212
  Serious: No
  Sender: FDA-Public Use
  Company Number: US-ENDO PHARMACEUTICALS INC.-SPLN20130080

PATIENT
  Age: 4 Year
  Sex: Female
  Weight: 20.9 kg

DRUGS (2)
  1. SUPPRELIN LA [Suspect]
     Indication: PRECOCIOUS PUBERTY
     Route: 058
     Dates: start: 20130711, end: 20131004
  2. SUPPRELIN LA [Suspect]
     Route: 058
     Dates: start: 20131004

REACTIONS (2)
  - Implant site nodule [Unknown]
  - Implant site pain [Unknown]
